FAERS Safety Report 26168146 (Version 1)
Quarter: 2025Q4

REPORT INFORMATION
  Report Type: Spontaneous
  Country: CN (occurrence: CN)
  Receive Date: 20251217
  Receipt Date: 20251217
  Transmission Date: 20260118
  Serious: Yes (Hospitalization, Other)
  Sender: ABBVIE
  Company Number: CN-LUNDBECK-DKLU4022832

PATIENT
  Age: 15 Year

DRUGS (3)
  1. ESCITALOPRAM OXALATE [Suspect]
     Active Substance: ESCITALOPRAM OXALATE
     Indication: Sleep disorder
     Dosage: 5 MG
     Route: 048
  2. TRAZODONE HYDROCHLORIDE [Suspect]
     Active Substance: TRAZODONE HYDROCHLORIDE
     Indication: Sleep disorder
     Dosage: 50 MILLIGRAM
     Route: 048
  3. LAMOTRIGINE [Suspect]
     Active Substance: LAMOTRIGINE
     Indication: Sleep disorder
     Dosage: 50 MILLIGRAM
     Route: 048

REACTIONS (4)
  - Agranulocytosis [Unknown]
  - Tonsillitis [Recovered/Resolved]
  - Leukopenia [Recovered/Resolved]
  - Product administered to patient of inappropriate age [Unknown]
